FAERS Safety Report 8362089-7 (Version None)
Quarter: 2012Q2

REPORT INFORMATION
  Report Type: 
  Country: None (occurrence: None)
  Receive Date: 20120515
  Receipt Date: 20120426
  Transmission Date: 20120825
  Serious: Yes (Other)
  Sender: FDA-Public Use
  Company Number: CHPA2012MX009784

PATIENT
  Sex: Male

DRUGS (5)
  1. CORDAPTIVE [Concomitant]
     Dosage: 1 DF, QD
  2. CRESTOR [Concomitant]
     Dosage: 0.5 DF, QD
  3. STILNOX                                 /FRA/ [Concomitant]
     Dosage: 2 DF, QD
  4. EXTE [Suspect]
     Dosage: 1 DF, ONCE/SINGLE
     Route: 048
     Dates: start: 20120101, end: 20120101
  5. DRUG THERAPY NOS [Concomitant]
     Dosage: 0.5 DF, QD

REACTIONS (4)
  - ANXIETY [None]
  - BODY TEMPERATURE INCREASED [None]
  - PANIC ATTACK [None]
  - FEELING ABNORMAL [None]
